FAERS Safety Report 16661334 (Version 1)
Quarter: 2019Q3

REPORT INFORMATION
  Report Type: Spontaneous
  Country: US (occurrence: US)
  Receive Date: 20190802
  Receipt Date: 20190802
  Transmission Date: 20191004
  Serious: No
  Sender: FDA-Public Use
  Company Number: US-PFIZER INC-2018051981

PATIENT
  Age: 16 Year
  Sex: Male
  Weight: 125 kg

DRUGS (1)
  1. GENOTROPIN [Suspect]
     Active Substance: SOMATROPIN
     Indication: GROWTH HORMONE DEFICIENCY
     Dosage: 0.4 MG, DAILY
     Dates: start: 20160906

REACTIONS (5)
  - Apathy [Unknown]
  - Lethargy [Unknown]
  - Device use issue [Unknown]
  - Increased appetite [Unknown]
  - Product dose omission [Unknown]
